FAERS Safety Report 6683584-2 (Version None)
Quarter: 2010Q2

REPORT INFORMATION
  Report Type: 
  Country: None (occurrence: None)
  Receive Date: 20100413
  Receipt Date: 20100331
  Transmission Date: 20101027
  Serious: Yes (Life-Threatening, Hospitalization)
  Sender: FDA-Public Use
  Company Number: FKO201000116

PATIENT
  Age: 64 Year
  Sex: Female

DRUGS (8)
  1. GEMCITABINE [Suspect]
     Indication: NON-SMALL CELL LUNG CANCER METASTATIC
     Dosage: (1250 MG/M2), INTRAVENOUS
     Route: 042
     Dates: start: 20100219, end: 20100219
  2. CARBOPLATIN [Suspect]
     Indication: NON-SMALL CELL LUNG CANCER METASTATIC
     Dosage: (430 MG)
  3. DEXAMETHASONE [Concomitant]
  4. METACLOPRAMIDE (METOCLOPRAMIDE HYDROCHLORIDE) (METOCLOPRAMIDE HYDROCHL [Concomitant]
  5. ONDANSETRON [Concomitant]
  6. BRUFEN (IBUPROFEN) (IBUPROFEN) [Concomitant]
  7. PARACETAMOL (PARACETAMOL) (PARACETAMOL) [Concomitant]
  8. TRAMADOL HYDROCHLORIDE (TRAMADOL HYDROCHLORIDE) (TRAMADOL HYDROCHLORID [Concomitant]

REACTIONS (2)
  - HEPATITIS [None]
  - MALAISE [None]
